FAERS Safety Report 20764638 (Version 4)
Quarter: 2022Q4

REPORT INFORMATION
  Report Type: Report from Study
  Country: DE (occurrence: DE)
  Receive Date: 20220428
  Receipt Date: 20221014
  Transmission Date: 20230113
  Serious: Yes (Hospitalization, Other)
  Sender: FDA-Public Use
  Company Number: DE-PFM-2022-03706

PATIENT
  Age: 60 Year
  Sex: Female
  Weight: 50 kg

DRUGS (26)
  1. BRAFTOVI [Suspect]
     Active Substance: ENCORAFENIB
     Indication: Colorectal cancer
     Dosage: 225 MG PER DAY
     Route: 048
     Dates: start: 20220414
  2. BRAFTOVI [Suspect]
     Active Substance: ENCORAFENIB
     Dosage: UNK
     Route: 048
     Dates: start: 20220424
  3. CETUXIMAB [Suspect]
     Active Substance: CETUXIMAB
     Indication: Colorectal cancer
     Dosage: 400 MG/M2, WEEKLY (FORMULATION LIQUID)
     Route: 042
     Dates: start: 20220414
  4. CETUXIMAB [Suspect]
     Active Substance: CETUXIMAB
     Dosage: UNK
     Route: 042
     Dates: start: 20220517
  5. AMINO ACIDS\DEXTROSE\ELECTROLYTES NOS\SOYBEAN OIL [Concomitant]
     Active Substance: AMINO ACIDS\DEXTROSE\ELECTROLYTES NOS\SOYBEAN OIL
     Dosage: 986 ML, BID (2/DAY)
     Route: 042
  6. DOMPERIDONE [Concomitant]
     Active Substance: DOMPERIDONE
     Dosage: 10 MG, TID (3/DAY)
     Route: 048
     Dates: start: 20210303
  7. Novaminsulfon (Metamizol natrium) [Concomitant]
     Dosage: 500 MG, QID (4/DAY)
     Route: 048
     Dates: start: 20111123
  8. Pantropazol Aristo [Concomitant]
     Dosage: 40 MG,DAILY
     Route: 048
     Dates: start: 20211123
  9. Sab simplex [Concomitant]
     Dosage: 30 DROPS, TID (3/DAY)
     Route: 048
     Dates: start: 20211227
  10. POLYETHYLENE GLYCOLS [Concomitant]
     Active Substance: POLYETHYLENE GLYCOLS
     Dosage: 137 G, BID (2/DAY)
     Route: 048
     Dates: start: 20211227
  11. FRESUBIN [Concomitant]
     Active Substance: AMINO ACIDS\DEXTROSE\ELECTROLYTES NOS\SOYBEAN OIL\VITAMINS
     Dosage: 1 FLASK, BID (2/DAY) (FRESUBIN DRINK)
     Route: 048
     Dates: start: 20211227
  12. FENTANYL [Concomitant]
     Active Substance: FENTANYL
     Dosage: 75 UG EVERY 3 DAYS (FENTANYL PFLASTER 25 UG/H)
     Route: 062
     Dates: start: 20220303
  13. Zopicion PUREN [Concomitant]
     Dosage: 7.5 MG,DAILY
     Route: 048
     Dates: start: 20220303
  14. PEROCUR [Concomitant]
     Indication: Prophylaxis
     Dosage: 250 MG, TID (3/DAY)
     Route: 048
     Dates: start: 20220303
  15. ALIZAPRIDE HYDROCHLORIDE [Concomitant]
     Active Substance: ALIZAPRIDE HYDROCHLORIDE
     Indication: Prophylaxis
     Dosage: 50 MG, TID (3/DAY)
     Route: 048
     Dates: start: 20220401
  16. OXYGEN [Concomitant]
     Active Substance: OXYGEN
     Indication: Respiratory failure
     Dosage: 2 UNK
     Dates: start: 20220401
  17. ENOXAPARIN SODIUM [Concomitant]
     Active Substance: ENOXAPARIN SODIUM
     Indication: Prophylaxis
     Dosage: 40 MG, DAILY (INHIXA 100.000 I.E. (1000 MG)/10 ML (ENOXAPARIN))
     Route: 058
     Dates: start: 20220401
  18. TORSEMIDE [Concomitant]
     Active Substance: TORSEMIDE
     Dosage: 10 MG, BID (2/DAY)
     Route: 048
     Dates: start: 20220401
  19. FENTANYL CITRATE [Concomitant]
     Active Substance: FENTANYL CITRATE
     Dosage: 100 ?G PRN (AS NEEDED)
     Route: 002
     Dates: start: 20220401
  20. SPIRONOLACTONE [Concomitant]
     Active Substance: SPIRONOLACTONE
     Dosage: 50 MG, BID (2/DAY) (SPIRONOLACTON AL 50)
     Route: 048
     Dates: start: 20220401
  21. CODEINE PHOSPHATE [Concomitant]
     Active Substance: CODEINE PHOSPHATE
     Dosage: 15 MG DAILY AS NEEDED
     Route: 048
     Dates: start: 20220419
  22. ENOXAPARIN [Concomitant]
     Active Substance: ENOXAPARIN
     Indication: Prophylaxis
     Dosage: 50 MG, BID (2/DAY)
     Route: 058
     Dates: start: 20220419
  23. LAXANS-RATIOPHARM PICO [Concomitant]
     Dosage: 7.5 MG,DAILY
     Route: 048
     Dates: start: 20220419
  24. Ampho-Monoral [Concomitant]
     Dosage: UNK
     Route: 065
     Dates: start: 20220517
  25. METHYLPREDNISOLONE ACEPONATE [Concomitant]
     Active Substance: METHYLPREDNISOLONE ACEPONATE
     Dosage: UNK
     Route: 065
     Dates: start: 20220517
  26. Hexoral [Concomitant]
     Dosage: UNK (MOUTH RINSING SOLUTION)
     Route: 048
     Dates: start: 20220517

REACTIONS (3)
  - Abdominal pain [Recovered/Resolved]
  - Rash [Recovering/Resolving]
  - Stomatitis [Unknown]

NARRATIVE: CASE EVENT DATE: 20220419
